FAERS Safety Report 4769904-4 (Version None)
Quarter: 2005Q3

REPORT INFORMATION
  Report Type: 
  Country: None (occurrence: None)
  Receive Date: 20050915
  Receipt Date: 20050907
  Transmission Date: 20060218
  Serious: Yes (Other)
  Sender: FDA-Public Use
  Company Number: PHNU2005DE03088

PATIENT
  Age: 65 Year
  Sex: Male

DRUGS (4)
  1. BISOPROLOL [Concomitant]
     Dosage: 5 MG/D
     Dates: start: 20050301
  2. DIOVAN [Suspect]
     Indication: HYPERTENSION
     Dosage: 80 MG/D
     Dates: start: 20050301, end: 20050701
  3. DIOVAN [Suspect]
     Dosage: 160 MG/D
     Dates: start: 20050701
  4. HYDROCHLOROTHIAZIDE [Concomitant]
     Indication: HYPERTENSION
     Dosage: 12.5 MG/D
     Dates: start: 20050301

REACTIONS (6)
  - ALANINE AMINOTRANSFERASE INCREASED [None]
  - ASPARTATE AMINOTRANSFERASE INCREASED [None]
  - BLOOD BILIRUBIN INCREASED [None]
  - BLOOD CREATINE PHOSPHOKINASE INCREASED [None]
  - BLOOD URIC ACID INCREASED [None]
  - GAMMA-GLUTAMYLTRANSFERASE INCREASED [None]
